FAERS Safety Report 15965093 (Version 1)
Quarter: 2019Q1

REPORT INFORMATION
  Report Type: Spontaneous
  Country: RU (occurrence: RU)
  Receive Date: 20190215
  Receipt Date: 20190215
  Transmission Date: 20190418
  Serious: Yes (Hospitalization)
  Sender: FDA-Public Use
  Company Number: RU-SUN PHARMACEUTICAL INDUSTRIES LTD-2018R1-195321

PATIENT
  Age: 17 Year
  Sex: Male
  Weight: 78 kg

DRUGS (1)
  1. SOTRET [Suspect]
     Active Substance: ISOTRETINOIN
     Indication: ACNE
     Dosage: 50 MILLIGRAM, DAILY
     Route: 048
     Dates: start: 20181028, end: 20190204

REACTIONS (2)
  - Acne [Unknown]
  - Pyoderma [Unknown]
